FAERS Safety Report 10258556 (Version 1)
Quarter: 2014Q2

REPORT INFORMATION
  Report Type: Report from Study
  Country: US (occurrence: US)
  Receive Date: 20140625
  Receipt Date: 20140625
  Transmission Date: 20141212
  Serious: Yes (Other)
  Sender: FDA-Public Use
  Company Number: PHEH2014US012697

PATIENT
  Sex: Male

DRUGS (1)
  1. GLEEVEC [Suspect]
     Indication: SOFT TISSUE SARCOMA
     Dosage: 400 MG, QD
     Route: 048

REACTIONS (1)
  - Gastric neoplasm [Unknown]
